FAERS Safety Report 6621703-4 (Version None)
Quarter: 2010Q1

REPORT INFORMATION
  Report Type: 
  Country: None (occurrence: None)
  Receive Date: 20100223
  Receipt Date: 20100120
  Transmission Date: 20100710
  Serious: No
  Sender: FDA-Public Use
  Company Number: 005200

PATIENT
  Sex: Male

DRUGS (1)
  1. CIMZIA [Suspect]
     Indication: CROHN'S DISEASE
     Dosage: 400 SUBCUTANEOUS
     Route: 058
     Dates: start: 20090610

REACTIONS (3)
  - NASOPHARYNGITIS [None]
  - PAIN [None]
  - SLEEP DISORDER [None]
